FAERS Safety Report 7233432-7 (Version None)
Quarter: 2011Q1

REPORT INFORMATION
  Report Type: 
  Country: None (occurrence: None)
  Receive Date: 20110119
  Receipt Date: 20110106
  Transmission Date: 20110831
  Serious: Yes (Death, Hospitalization)
  Sender: FDA-Public Use
  Company Number: FR-ELI_LILLY_AND_COMPANY-FR201101001426

PATIENT
  Sex: Female

DRUGS (6)
  1. PROZAC [Suspect]
     Indication: DEPRESSION
     Dosage: 10 ML, UNK
     Route: 048
     Dates: end: 20101030
  2. NOCTRAN 10 [Concomitant]
     Dosage: 10 MG, DAILY (1/D)
     Route: 048
     Dates: end: 20101030
  3. ACUITEL [Concomitant]
     Route: 048
  4. SERESTA [Concomitant]
     Dosage: 10 MG, 3/D
     Route: 048
     Dates: start: 20101021, end: 20101030
  5. RISPERDAL [Concomitant]
     Dosage: 0.5 MG, DAILY (1/D)
     Route: 048
     Dates: end: 20101030
  6. TEMESTA [Concomitant]
     Dosage: UNK, 2/D
     Route: 048

REACTIONS (4)
  - PNEUMONIA ASPIRATION [None]
  - RHABDOMYOLYSIS [None]
  - FALL [None]
  - DEHYDRATION [None]
